FAERS Safety Report 14702739 (Version 2)
Quarter: 2018Q3

REPORT INFORMATION
  Report Type: Report from Study
  Country: None (occurrence: US)
  Receive Date: 20180402
  Receipt Date: 20180710
  Transmission Date: 20181010
  Serious: Yes (Hospitalization, Other)
  Sender: FDA-Public Use
  Company Number: US-ABBVIE-17K-163-2027612-00

PATIENT
  Age: 55 Year
  Sex: Male

DRUGS (3)
  1. HUMIRA [Suspect]
     Active Substance: ADALIMUMAB
     Dosage: DAY 8 AND THEREAFTER
     Route: 058
     Dates: start: 20170627, end: 20171112
  2. HUMIRA [Suspect]
     Active Substance: ADALIMUMAB
     Route: 058
     Dates: start: 20180216
  3. HUMIRA [Suspect]
     Active Substance: ADALIMUMAB
     Indication: PSORIASIS
     Dosage: DAY 1 (2 PENS)
     Route: 058
     Dates: start: 20170620, end: 20170620

REACTIONS (16)
  - Intestinal obstruction [Unknown]
  - Nasopharyngitis [Not Recovered/Not Resolved]
  - Rash macular [Unknown]
  - Urinary tract infection [Unknown]
  - Skin irritation [Not Recovered/Not Resolved]
  - Hypoaesthesia [Not Recovered/Not Resolved]
  - Rash erythematous [Not Recovered/Not Resolved]
  - Psoriasis [Unknown]
  - Pruritus [Not Recovered/Not Resolved]
  - Drug ineffective [Not Recovered/Not Resolved]
  - Hypersensitivity [Not Recovered/Not Resolved]
  - Pain of skin [Recovered/Resolved]
  - Injection site pain [Not Recovered/Not Resolved]
  - Hip arthroplasty [Unknown]
  - Dry skin [Unknown]
  - Skin irritation [Recovered/Resolved]

NARRATIVE: CASE EVENT DATE: 2017
